FAERS Safety Report 20484371 (Version 2)
Quarter: 2022Q1

REPORT INFORMATION
  Report Type: Spontaneous
  Country: CA (occurrence: CA)
  Receive Date: 20220217
  Receipt Date: 20220329
  Transmission Date: 20220424
  Serious: Yes (Death)
  Sender: FDA-Public Use
  Company Number: CA-PFIZER INC-202101057565

PATIENT
  Age: 77 Year
  Sex: Female

DRUGS (4)
  1. RUXIENCE [Suspect]
     Active Substance: RITUXIMAB-PVVR
     Indication: Scleroderma
     Dosage: 1000 MG, DAY 1 AND DAY 14
     Route: 042
     Dates: start: 20210908, end: 20210908
  2. RUXIENCE [Suspect]
     Active Substance: RITUXIMAB-PVVR
     Indication: Rheumatoid arthritis-associated interstitial lung disease
     Dosage: 1000 MG, DAY 1 AND DAY 14
     Route: 042
     Dates: start: 20210923, end: 20210923
  3. PREDNISONE [Concomitant]
     Active Substance: PREDNISONE
     Dosage: 2.5 MG
     Dates: start: 202101
  4. MYCOPHENOLIC ACID [Concomitant]
     Active Substance: MYCOPHENOLIC ACID
     Dosage: 1000 MG

REACTIONS (2)
  - Death [Fatal]
  - Off label use [Unknown]
